FAERS Safety Report 11680575 (Version 3)
Quarter: 2015Q4

REPORT INFORMATION
  Report Type: Spontaneous
  Country: US (occurrence: US)
  Receive Date: 20151027
  Receipt Date: 20151110
  Transmission Date: 20160304
  Serious: No
  Sender: FDA-Public Use
  Company Number: US-ELI_LILLY_AND_COMPANY-US201009003348

PATIENT
  Age: 85 Year
  Sex: Female

DRUGS (4)
  1. FORTEO [Suspect]
     Active Substance: TERIPARATIDE
     Dosage: 20 UG, QD
     Route: 065
  2. FORTEO [Suspect]
     Active Substance: TERIPARATIDE
     Dosage: 20 UG, QD
     Route: 065
  3. FORTEO [Suspect]
     Active Substance: TERIPARATIDE
     Indication: OSTEOPOROSIS
     Dosage: 20 UG, QD
     Route: 065
     Dates: start: 201006
  4. FORTEO [Suspect]
     Active Substance: TERIPARATIDE
     Dosage: 20 UG, QD
     Route: 065

REACTIONS (13)
  - Fracture [Unknown]
  - Tremor [Unknown]
  - Fall [Recovered/Resolved]
  - Abdominal pain upper [Recovered/Resolved]
  - Dysstasia [Unknown]
  - Muscle spasms [Unknown]
  - Bone pain [Unknown]
  - Constipation [Unknown]
  - Arthralgia [Not Recovered/Not Resolved]
  - Joint swelling [Not Recovered/Not Resolved]
  - Back pain [Not Recovered/Not Resolved]
  - Pruritus [Recovering/Resolving]
  - Asthenia [Unknown]

NARRATIVE: CASE EVENT DATE: 201011
